FAERS Safety Report 13234339 (Version 2)
Quarter: 2017Q1

REPORT INFORMATION
  Report Type: Spontaneous
  Country: US (occurrence: US)
  Receive Date: 20170215
  Receipt Date: 20170221
  Transmission Date: 20170428
  Serious: No
  Sender: FDA-Public Use
  Company Number: US-NAPPMUNDI-USA-2017-0136615

PATIENT
  Sex: Male

DRUGS (3)
  1. OXYCONTIN [Suspect]
     Active Substance: OXYCODONE HYDROCHLORIDE
     Dosage: 180 MG, BID
     Route: 048
     Dates: start: 2004
  2. OXYCONTIN [Suspect]
     Active Substance: OXYCODONE HYDROCHLORIDE
     Indication: PAIN MANAGEMENT
     Dosage: 120 MG, DAILY
     Route: 048
     Dates: start: 2004
  3. OXYCODONE HYDROCHLORIDE. [Suspect]
     Active Substance: OXYCODONE HYDROCHLORIDE
     Indication: BREAKTHROUGH PAIN
     Dosage: (1-2 X 30 MG) 30-60 MG, Q3- 4H PRN
     Route: 048

REACTIONS (4)
  - Mobility decreased [Unknown]
  - Renal impairment [Unknown]
  - Mental impairment [Unknown]
  - Drug effect decreased [Unknown]
